FAERS Safety Report 8068081-4 (Version None)
Quarter: 2012Q1

REPORT INFORMATION
  Report Type: 
  Country: None (occurrence: None)
  Receive Date: 20120124
  Receipt Date: 20110920
  Transmission Date: 20120608
  Serious: No
  Sender: FDA-Public Use
  Company Number: US-AMGEN-USASP2011048606

PATIENT
  Age: 83 Year
  Sex: Female

DRUGS (11)
  1. TYLENOL (CAPLET) [Concomitant]
     Dosage: UNK
  2. HYDROCHLOROTHIAZIDE [Concomitant]
     Dosage: UNK
  3. METOPROLOL TARTRATE [Concomitant]
     Dosage: UNK
  4. FISH OIL [Concomitant]
     Dosage: UNK
  5. LIPITOR [Concomitant]
     Dosage: UNK
  6. VITAMIN D [Concomitant]
     Dosage: UNK
  7. PROLIA [Suspect]
     Indication: OSTEOPOROSIS POSTMENOPAUSAL
     Dosage: 60 MG, UNK
  8. GLUCOSAMINE [Concomitant]
     Dosage: UNK
  9. CENTRUM SILVER                     /01292501/ [Concomitant]
     Dosage: UNK
  10. AGGRENOX [Concomitant]
     Dosage: UNK
  11. CITRACAL                           /00751520/ [Concomitant]
     Dosage: UNK

REACTIONS (1)
  - TOOTHACHE [None]
